FAERS Safety Report 7353314-X (Version None)
Quarter: 2011Q1

REPORT INFORMATION
  Report Type: 
  Country: None (occurrence: None)
  Receive Date: 20110315
  Receipt Date: 20110228
  Transmission Date: 20110831
  Serious: Yes (Hospitalization)
  Sender: FDA-Public Use
  Company Number: US-ACTELION-A-US2010-33875

PATIENT

DRUGS (5)
  1. TRACLEER [Suspect]
     Indication: PULMONARY ARTERIAL HYPERTENSION
     Dosage: 125 MG, BID
     Route: 048
  2. TRACLEER [Suspect]
     Dosage: 62.5 MG, BID
     Route: 048
     Dates: start: 20100201, end: 20110224
  3. TRACLEER [Suspect]
     Dosage: UNK
     Route: 048
     Dates: start: 20090506
  4. COUMADIN [Concomitant]
  5. TRACLEER [Suspect]
     Dosage: 62.5 MG, BID
     Route: 048
     Dates: end: 20100201

REACTIONS (6)
  - MITRAL VALVE REPLACEMENT [None]
  - NO THERAPEUTIC RESPONSE [None]
  - HEART VALVE INCOMPETENCE [None]
  - MITRAL VALVE INCOMPETENCE [None]
  - DIARRHOEA [None]
  - PLEURAL EFFUSION [None]
